FAERS Safety Report 7000365-0 (Version None)
Quarter: 2010Q3

REPORT INFORMATION
  Report Type: 
  Country: None (occurrence: None)
  Receive Date: 20100920
  Receipt Date: 20091217
  Transmission Date: 20110219
  Serious: No
  Sender: FDA-Public Use
  Company Number: US-ASTRAZENECA-2009SE08650

PATIENT
  Age: 49 Year
  Sex: Female
  Weight: 92.5 kg

DRUGS (3)
  1. SEROQUEL [Suspect]
     Indication: SLEEP DISORDER
     Route: 048
     Dates: start: 19990101, end: 20070301
  2. SEROQUEL [Suspect]
     Indication: DEPRESSION
     Route: 048
     Dates: start: 19990101, end: 20070301
  3. ABILIFY [Concomitant]
     Dates: start: 20070101

REACTIONS (4)
  - BACK DISORDER [None]
  - DIABETES MELLITUS [None]
  - PAIN [None]
  - TYPE 2 DIABETES MELLITUS [None]
